FAERS Safety Report 9132931 (Version 1)
Quarter: 2013Q1

REPORT INFORMATION
  Report Type: Spontaneous
  Country: US (occurrence: US)
  Receive Date: 20130128
  Receipt Date: 20130128
  Transmission Date: 20140127
  Serious: No
  Sender: FDA-Public Use
  Company Number: US-B.I. PHARMACEUTICALS,INC./RIDGEFIELD-2013-BI-01865BP

PATIENT
  Age: 68 Year
  Sex: Female

DRUGS (2)
  1. SPIRIVA [Suspect]
     Indication: EMPHYSEMA
     Dosage: 18 MCG
     Route: 055
     Dates: start: 201212
  2. SPIRIVA [Suspect]
     Route: 055
     Dates: start: 20130122, end: 20130122

REACTIONS (3)
  - Inappropriate schedule of drug administration [Recovered/Resolved]
  - Product quality issue [Unknown]
  - Product quality issue [Unknown]
